FAERS Safety Report 25866839 (Version 1)
Quarter: 2025Q4

REPORT INFORMATION
  Report Type: Spontaneous
  Country: US (occurrence: US)
  Receive Date: 20251001
  Receipt Date: 20251001
  Transmission Date: 20260117
  Serious: No
  Sender: RANBAXY
  Company Number: US-SUN PHARMACEUTICAL INDUSTRIES LTD-2025R1-501240

PATIENT
  Sex: Male

DRUGS (1)
  1. BUPRENORPHINE\NALOXONE [Suspect]
     Active Substance: BUPRENORPHINE\NALOXONE
     Indication: Pain
     Dosage: UNK, (TWO TIMES A DAY) BID
     Route: 065
     Dates: start: 2018

REACTIONS (3)
  - Constipation [Unknown]
  - Dyspnoea [Unknown]
  - Prostatic specific antigen increased [Unknown]
